FAERS Safety Report 6383368-9 (Version None)
Quarter: 2009Q4

REPORT INFORMATION
  Report Type: 
  Country: None (occurrence: None)
  Receive Date: 20091001
  Receipt Date: 20090922
  Transmission Date: 20100525
  Serious: Yes (Hospitalization, Other)
  Sender: FDA-Public Use
  Company Number: PHHY2009MX40890

PATIENT
  Sex: Female

DRUGS (5)
  1. STALEVO 100 [Suspect]
     Indication: PARKINSON'S DISEASE
     Dosage: 200/150/37.5 MG/2 TABLETS DAILY
     Route: 048
     Dates: start: 20070601
  2. CLONAZEPAM [Concomitant]
     Indication: ANXIETY
     Dosage: 1 TABLET PER DAY
     Route: 048
     Dates: start: 20090529
  3. SERTRALINE HCL [Concomitant]
     Indication: ANXIETY
     Dosage: 1 TABLET PER DAY
     Route: 048
     Dates: start: 20090529
  4. OLANZAPINE [Concomitant]
     Indication: ANXIETY
     Dosage: 0.25 MG/1 TABLET DAILY
     Route: 048
     Dates: start: 20090529
  5. METOPROLOL [Concomitant]
     Indication: HYPERTENSION
     Dosage: 1 TABLET PER DAY
     Route: 048
     Dates: start: 20090601

REACTIONS (1)
  - MEIGE'S SYNDROME [None]
